FAERS Safety Report 10045149 (Version 1)
Quarter: 2014Q1

REPORT INFORMATION
  Report Type: Spontaneous
  Country: US (occurrence: US)
  Receive Date: 20140328
  Receipt Date: 20140328
  Transmission Date: 20141002
  Serious: Yes (Hospitalization, Other)
  Sender: FDA-Public Use
  Company Number: US-ROXANE LABORATORIES, INC.-2014-RO-00475RO

PATIENT
  Age: 29 Year
  Sex: Male

DRUGS (6)
  1. CLOPIDOGREL [Suspect]
     Indication: CEREBROVASCULAR ACCIDENT
     Dosage: 75 MG
     Route: 065
  2. PREDNISONE [Suspect]
     Indication: TAKAYASU^S ARTERITIS
     Dosage: 60 MG
     Route: 065
  3. AZATHIOPRINE [Suspect]
     Indication: PRODUCT USED FOR UNKNOWN INDICATION
     Route: 065
  4. ASPIRIN [Suspect]
     Indication: CEREBROVASCULAR ACCIDENT
     Dosage: 81 MG
     Route: 065
  5. GAMMA GLOBULIN [Suspect]
     Indication: IMMUNODEFICIENCY COMMON VARIABLE
     Route: 042
  6. SIMVASTATIN [Concomitant]
     Dosage: 20 MG
     Route: 065

REACTIONS (6)
  - Embolism [Unknown]
  - Retinopathy [Unknown]
  - Takayasu^s arteritis [Unknown]
  - Anxiety [Unknown]
  - Tremor [Unknown]
  - Neutropenia [Unknown]
